FAERS Safety Report 8974369 (Version 1)
Quarter: 2012Q4

REPORT INFORMATION
  Report Type: Spontaneous
  Country: US (occurrence: None)
  Receive Date: 20121217
  Receipt Date: 20121217
  Transmission Date: 20130627
  Serious: Yes (Life-Threatening, Hospitalization, Disabling)
  Sender: FDA-Public Use
  Company Number: None

PATIENT
  Age: 14 Year
  Sex: Female
  Weight: 90.72 kg

DRUGS (3)
  1. RISPERIDONE [Suspect]
     Indication: BIPOLAR DISORDER
     Dosage: 1 TABLET DAILY po
     Route: 048
     Dates: start: 20120418, end: 20120430
  2. RISPERIDONE [Suspect]
     Indication: PERSONALITY DISORDER
     Dosage: 1 TABLET DAILY po
     Route: 048
     Dates: start: 20120418, end: 20120430
  3. ONDANSETRON HCL [Suspect]
     Indication: NAUSEA
     Dosage: 1 TABLET 8 HOURS PO
     Route: 048
     Dates: start: 20120424, end: 20120430

REACTIONS (2)
  - Cardiac arrest [None]
  - Torsade de pointes [None]
